FAERS Safety Report 21663907 (Version 1)
Quarter: 2022Q4

REPORT INFORMATION
  Report Type: Spontaneous
  Country: FR (occurrence: FR)
  Receive Date: 20221130
  Receipt Date: 20221130
  Transmission Date: 20230112
  Serious: Yes (Other)
  Sender: FDA-Public Use
  Company Number: FR-BRISTOL-MYERS SQUIBB COMPANY-2022-140642

PATIENT
  Age: 70 Year
  Sex: Male
  Weight: 64 kg

DRUGS (2)
  1. VIDAZA [Suspect]
     Active Substance: AZACITIDINE
     Indication: Myelodysplastic syndrome
     Dosage: 5 INJECTIONS/4WEEK
     Route: 065
     Dates: end: 202209
  2. CORTISONE [Suspect]
     Active Substance: CORTISONE
     Indication: Graft versus host disease
     Route: 048

REACTIONS (9)
  - Condition aggravated [Unknown]
  - Decreased appetite [Recovering/Resolving]
  - Dry mouth [Recovering/Resolving]
  - Tremor [Unknown]
  - Graft versus host disease [Unknown]
  - Weight decreased [Not Recovered/Not Resolved]
  - Haemoglobin decreased [Unknown]
  - Platelet count decreased [Unknown]
  - Gastric disorder [Unknown]
